FAERS Safety Report 12726497 (Version 3)
Quarter: 2018Q3

REPORT INFORMATION
  Report Type: Spontaneous
  Country: FR (occurrence: FR)
  Receive Date: 20160908
  Receipt Date: 20180709
  Transmission Date: 20181010
  Serious: Yes (Congenital Anomaly, Other)
  Sender: FDA-Public Use
  Company Number: FR-ABBVIE-16P-056-1721670-00

PATIENT
  Sex: Male

DRUGS (6)
  1. PRIMPERAN [Concomitant]
     Active Substance: METOCLOPRAMIDE HYDROCHLORIDE
     Dosage: SUPPOSITORY
  2. TOPAAL [Concomitant]
     Active Substance: ALGINIC ACID\ALUMINUM HYDROXIDE\MAGNESIUM CARBONATE
     Indication: PRODUCT USED FOR UNKNOWN INDICATION
  3. DEPAKINE [Suspect]
     Active Substance: VALPROATE SODIUM
     Indication: MATERNAL EXPOSURE TIMING UNSPECIFIED
     Route: 064
  4. MAALOX ANTACID [Concomitant]
     Active Substance: ALUMINUM HYDROXIDE\DIMETHICONE\MAGNESIUM HYDROXIDE
     Indication: PRODUCT USED FOR UNKNOWN INDICATION
  5. PRIMPERAN [Concomitant]
     Active Substance: METOCLOPRAMIDE HYDROCHLORIDE
     Indication: PRODUCT USED FOR UNKNOWN INDICATION
  6. SALBUTAMOL [Concomitant]
     Active Substance: ALBUTEROL
     Indication: PRODUCT USED FOR UNKNOWN INDICATION
     Dosage: SUPPOSITORY

REACTIONS (20)
  - Speech disorder [Not Recovered/Not Resolved]
  - Anger [Not Recovered/Not Resolved]
  - IIIrd nerve disorder [Not Recovered/Not Resolved]
  - Abnormal behaviour [Not Recovered/Not Resolved]
  - Foot deformity [Not Recovered/Not Resolved]
  - Dyslexia [Not Recovered/Not Resolved]
  - Astigmatism [Not Recovered/Not Resolved]
  - Posture abnormal [Not Recovered/Not Resolved]
  - Developmental delay [Not Recovered/Not Resolved]
  - Joint laxity [Not Recovered/Not Resolved]
  - Dysmorphism [Not Recovered/Not Resolved]
  - Language disorder [Not Recovered/Not Resolved]
  - Brachydactyly [Not Recovered/Not Resolved]
  - Dental alveolar anomaly [Not Recovered/Not Resolved]
  - Enuresis [Unknown]
  - Mental disorder [Not Recovered/Not Resolved]
  - Learning disorder [Not Recovered/Not Resolved]
  - Disturbance in attention [Not Recovered/Not Resolved]
  - Foetal exposure during pregnancy [Unknown]
  - Dysgraphia [Not Recovered/Not Resolved]

NARRATIVE: CASE EVENT DATE: 2012
